FAERS Safety Report 6571793-2 (Version None)
Quarter: 2010Q1

REPORT INFORMATION
  Report Type: 
  Country: None (occurrence: None)
  Receive Date: 20100205
  Receipt Date: 20100108
  Transmission Date: 20100710
  Serious: No
  Sender: FDA-Public Use
  Company Number: US-BAYER-201010778NA

PATIENT
  Sex: Female

DRUGS (1)
  1. MIRENA [Suspect]
     Indication: DRUG USE FOR UNKNOWN INDICATION
     Route: 015
     Dates: start: 20090101

REACTIONS (7)
  - DIVERTICULITIS [None]
  - MEDICAL DEVICE COMPLICATION [None]
  - MENSTRUAL DISORDER [None]
  - PAIN [None]
  - PELVIC PAIN [None]
  - UTERINE LEIOMYOMA [None]
  - WEIGHT INCREASED [None]
